FAERS Safety Report 24446526 (Version 2)
Quarter: 2025Q4

REPORT INFORMATION
  Report Type: Spontaneous
  Country: US (occurrence: US)
  Receive Date: 20241016
  Receipt Date: 20251105
  Transmission Date: 20260117
  Serious: No
  Sender: RANBAXY
  Company Number: US-SUN PHARMACEUTICAL INDUSTRIES LTD-2023R1-424683

PATIENT
  Sex: Male

DRUGS (1)
  1. XELPROS [Suspect]
     Active Substance: LATANOPROST
     Indication: Open angle glaucoma
     Dosage: UNK
     Route: 065
     Dates: start: 2022

REACTIONS (1)
  - Product use issue [Unknown]
